FAERS Safety Report 16431661 (Version 2)
Quarter: 2019Q2

REPORT INFORMATION
  Report Type: Spontaneous
  Country: US (occurrence: US)
  Receive Date: 20190614
  Receipt Date: 20190626
  Transmission Date: 20190711
  Serious: No
  Sender: FDA-Public Use
  Company Number: US-KRAMERLABS-2019-US-003486

PATIENT
  Sex: Male

DRUGS (1)
  1. NIZORAL A-D [Suspect]
     Active Substance: KETOCONAZOLE
     Indication: PRURITUS
     Route: 061

REACTIONS (2)
  - Pruritus [Unknown]
  - Unevaluable event [Unknown]
